FAERS Safety Report 17591614 (Version 1)
Quarter: 2020Q1

REPORT INFORMATION
  Report Type: Spontaneous
  Country: US (occurrence: US)
  Receive Date: 20200327
  Receipt Date: 20200327
  Transmission Date: 20200409
  Serious: Yes (Hospitalization)
  Sender: FDA-Public Use
  Company Number: None

PATIENT
  Sex: Male

DRUGS (6)
  1. SMZ-TMP [Concomitant]
     Active Substance: SULFAMETHOXAZOLE\TRIMETHOPRIM
  2. VIRT-PHOS [Concomitant]
  3. ACYCLOVIR. [Concomitant]
     Active Substance: ACYCLOVIR
  4. NEUPOGEN [Suspect]
     Active Substance: FILGRASTIM
     Indication: BRAIN NEOPLASM MALIGNANT
     Dosage: ?          OTHER FREQUENCY:DAILY FOR 14 DAYS;?
     Route: 058
     Dates: start: 20191001
  5. MAG OXIDE [Concomitant]
     Active Substance: MAGNESIUM OXIDE
  6. FLUCONAZOLE. [Concomitant]
     Active Substance: FLUCONAZOLE

REACTIONS (1)
  - Hospitalisation [None]
